FAERS Safety Report 8306721-2 (Version None)
Quarter: 2012Q2

REPORT INFORMATION
  Report Type: 
  Country: None (occurrence: None)
  Receive Date: 20120424
  Receipt Date: 20120416
  Transmission Date: 20120825
  Serious: Yes (Hospitalization)
  Sender: FDA-Public Use
  Company Number: US-BAYER-2011-084587

PATIENT
  Age: 26 Year
  Sex: Female
  Weight: 73.469 kg

DRUGS (11)
  1. DROSPIRENONE AND ETHINYL ESTRADIOL [Suspect]
     Indication: PREMENSTRUAL SYNDROME
  2. YASMIN [Suspect]
     Indication: PREMENSTRUAL SYNDROME
  3. PENICILLIN [Concomitant]
     Dosage: UNK
     Dates: start: 19980101, end: 20090101
  4. FLINTSTONES MULTIPLE VITAMINS [Concomitant]
     Dosage: UNK UNK, QD
     Dates: start: 20020101, end: 20060101
  5. YASMIN [Suspect]
     Indication: MENSTRUATION IRREGULAR
     Dosage: UNK
     Route: 048
     Dates: start: 19980101, end: 20040101
  6. NAPROXEN (ALEVE) [Concomitant]
     Dosage: UNK
     Dates: start: 19930101
  7. ZITHROMAX [Concomitant]
     Dosage: UNK
     Dates: start: 19980101, end: 20090101
  8. DROSPIRENONE AND ETHINYL ESTRADIOL [Suspect]
     Indication: MENSTRUATION IRREGULAR
     Dosage: UNK
     Dates: start: 19980101, end: 20040101
  9. AMOXICILLIN [Concomitant]
     Dosage: UNK
     Dates: start: 19980101, end: 20090101
  10. IBUPROFEN [Concomitant]
     Dosage: UNK
     Dates: start: 19930101
  11. ZITHROMAX [Concomitant]
     Dosage: UNK
     Dates: start: 19980101, end: 20090101

REACTIONS (8)
  - GASTRIC DISORDER [None]
  - CHOLELITHIASIS [None]
  - CHEST PAIN [None]
  - FEAR [None]
  - EMOTIONAL DISTRESS [None]
  - BACK PAIN [None]
  - VOMITING [None]
  - ANXIETY [None]
